FAERS Safety Report 6911859-8 (Version None)
Quarter: 2010Q3

REPORT INFORMATION
  Report Type: 
  Country: None (occurrence: None)
  Receive Date: 20100806
  Receipt Date: 20070712
  Transmission Date: 20110219
  Serious: No
  Sender: FDA-Public Use
  Company Number: US-PFIZER INC-2007057314

PATIENT
  Sex: Male
  Weight: 85.9 kg

DRUGS (8)
  1. DETROL LA [Suspect]
     Indication: POLLAKIURIA
     Dates: start: 20070705
  2. EFFEXOR [Concomitant]
  3. CELEXA [Concomitant]
  4. IMDUR [Concomitant]
  5. NORVASC [Concomitant]
  6. HYDROCHLOROTHIAZIDE [Concomitant]
  7. ZANTAC [Concomitant]
  8. KLONOPIN [Concomitant]

REACTIONS (1)
  - TINNITUS [None]
